FAERS Safety Report 4362171-5 (Version None)
Quarter: 2004Q2

REPORT INFORMATION
  Report Type: 
  Country: None (occurrence: None)
  Receive Date: 20040520
  Receipt Date: 20040520
  Transmission Date: 20050107
  Serious: Yes (Hospitalization)
  Sender: FDA-Public Use
  Company Number: None

PATIENT
  Sex: Male
  Weight: 122.9248 kg

DRUGS (11)
  1. ZOCOR [Suspect]
     Indication: HYPERCHOLESTEROLAEMIA
     Dosage: ZOCOR 80 MG QHS
     Dates: start: 19990101
  2. GEMFIBROZIL [Suspect]
     Dosage: 600 MG BID
     Dates: start: 19990101
  3. INSULIN [Concomitant]
  4. NITROGLYCERIN [Concomitant]
  5. ASPIRIN [Concomitant]
  6. METOPROL XL [Concomitant]
  7. LISINOPRIL [Concomitant]
  8. DILTIAZEM [Concomitant]
  9. TERAZOSIN HCL [Concomitant]
  10. METFORMIN HCL [Concomitant]
  11. RANITIDINE [Concomitant]

REACTIONS (3)
  - ALCOHOL USE [None]
  - PERIPHERAL VASCULAR DISORDER [None]
  - RHABDOMYOLYSIS [None]
